FAERS Safety Report 25340428 (Version 8)
Quarter: 2025Q4

REPORT INFORMATION
  Report Type: Spontaneous
  Country: US (occurrence: US)
  Receive Date: 20250521
  Receipt Date: 20251217
  Transmission Date: 20260118
  Serious: Yes (Hospitalization)
  Sender: CSL BEHRING
  Company Number: US-BEH-2025205420

PATIENT
  Age: 66 Year
  Sex: Male
  Weight: 71.655 kg

DRUGS (6)
  1. ZEMAIRA [Suspect]
     Active Substance: .ALPHA.1-PROTEINASE INHIBITOR HUMAN
     Indication: Alpha-1 antitrypsin deficiency
     Dosage: 4300 MG, QW (3870-4730)
     Route: 042
     Dates: start: 202008
  2. ZEMAIRA [Suspect]
     Active Substance: .ALPHA.1-PROTEINASE INHIBITOR HUMAN
     Dosage: 4300 MG
     Route: 042
     Dates: start: 202008
  3. ZEMAIRA [Suspect]
     Active Substance: .ALPHA.1-PROTEINASE INHIBITOR HUMAN
     Dosage: UNK, QW
     Route: 042
  4. OHTUVAYRE [Concomitant]
     Active Substance: ENSIFENTRINE
     Indication: Chronic obstructive pulmonary disease
  5. EPINEPHRINE [Concomitant]
     Active Substance: EPINEPHRINE
  6. SODIUM CHLORIDE [Concomitant]
     Active Substance: SODIUM CHLORIDE

REACTIONS (25)
  - Heart rate increased [Unknown]
  - Cough [Unknown]
  - Dyspnoea [Unknown]
  - Blood gases abnormal [Unknown]
  - Dyspnoea [Unknown]
  - Heart rate abnormal [Unknown]
  - Pneumonia [Unknown]
  - Haemoglobin decreased [Unknown]
  - Chronic obstructive pulmonary disease [Unknown]
  - Product dose omission issue [Unknown]
  - Dyspnoea [Unknown]
  - Gastrointestinal haemorrhage [Recovered/Resolved]
  - Rectal haemorrhage [Recovered/Resolved]
  - Dyspnoea [Unknown]
  - Chronic obstructive pulmonary disease [Recovering/Resolving]
  - Sinusitis [Recovered/Resolved]
  - Dyspnoea [Unknown]
  - Sinus disorder [Unknown]
  - Cough [Unknown]
  - Treatment noncompliance [Unknown]
  - Therapy interrupted [Unknown]
  - Product container issue [Unknown]
  - Product dose omission in error [Unknown]
  - Product container issue [Unknown]
  - Insomnia [Unknown]

NARRATIVE: CASE EVENT DATE: 20251001
